FAERS Safety Report 13321194 (Version 2)
Quarter: 2018Q2

REPORT INFORMATION
  Report Type: Spontaneous
  Country: GB (occurrence: GB)
  Receive Date: 20170310
  Receipt Date: 20180508
  Transmission Date: 20180711
  Serious: Yes (Hospitalization)
  Sender: FDA-Public Use
  Company Number: GB-SA-2017SA037270

PATIENT
  Age: 42 Year
  Sex: Female

DRUGS (1)
  1. ENOXAPARIN SODIUM. [Suspect]
     Active Substance: ENOXAPARIN SODIUM
     Indication: THROMBOSIS PROPHYLAXIS
     Route: 058
     Dates: start: 20161115, end: 20171208

REACTIONS (4)
  - Peritoneal haemorrhage [Recovered/Resolved]
  - Incorrect dose administered [Unknown]
  - Drug monitoring procedure not performed [Unknown]
  - Ovarian cyst ruptured [Recovered/Resolved]
